FAERS Safety Report 10382446 (Version 2)
Quarter: 2014Q3

REPORT INFORMATION
  Report Type: Report from Study
  Country: US (occurrence: US)
  Receive Date: 20140813
  Receipt Date: 20140813
  Transmission Date: 20150326
  Serious: Yes (Other)
  Sender: FDA-Public Use
  Company Number: US-SA-2014SA052837

PATIENT
  Age: 40 Year
  Sex: Female

DRUGS (2)
  1. AUBAGIO [Suspect]
     Active Substance: TERIFLUNOMIDE
     Indication: MULTIPLE SCLEROSIS
     Dosage: STRENGTH- 14 MG
     Route: 048
     Dates: start: 201407
  2. AUBAGIO [Suspect]
     Active Substance: TERIFLUNOMIDE
     Indication: MULTIPLE SCLEROSIS
     Dosage: STRENGTH- 7 MG
     Route: 048
     Dates: start: 20140331

REACTIONS (9)
  - Chest discomfort [Unknown]
  - Diarrhoea [Unknown]
  - Back pain [Unknown]
  - Pain [Unknown]
  - Hypertension [Recovered/Resolved]
  - Kidney infection [Unknown]
  - Malaise [Unknown]
  - Heart rate increased [Unknown]
  - Dyspnoea [Unknown]

NARRATIVE: CASE EVENT DATE: 20140331
